FAERS Safety Report 6181212-6 (Version None)
Quarter: 2009Q2

REPORT INFORMATION
  Report Type: 
  Country: None (occurrence: None)
  Receive Date: 20090506
  Receipt Date: 20090501
  Transmission Date: 20091009
  Serious: Yes (Hospitalization)
  Sender: FDA-Public Use
  Company Number: US-GILEAD-2008-0019654

PATIENT
  Sex: Male
  Weight: 166.16 kg

DRUGS (13)
  1. LETAIRIS [Suspect]
     Indication: PULMONARY ARTERIAL HYPERTENSION
     Route: 048
     Dates: end: 20090201
  2. PRILOSEC [Concomitant]
  3. K-DUR [Concomitant]
  4. DARVOCET-N 100 [Concomitant]
  5. ZOCOR [Concomitant]
  6. ALDACTONE [Concomitant]
  7. MULTI-VITAMIN [Concomitant]
  8. TENORMIN [Concomitant]
  9. TRICOR [Concomitant]
  10. ASPIRIN CHEW [Concomitant]
  11. BENICAR [Concomitant]
  12. METOLAZONE [Concomitant]
  13. LASIX [Concomitant]

REACTIONS (3)
  - ANAEMIA [None]
  - LIVER FUNCTION TEST ABNORMAL [None]
  - RENAL FAILURE ACUTE [None]
